FAERS Safety Report 5670353-5 (Version None)
Quarter: 2008Q1

REPORT INFORMATION
  Report Type: 
  Country: None (occurrence: None)
  Receive Date: 20080313
  Receipt Date: 20080303
  Transmission Date: 20080703
  Serious: Yes (Hospitalization)
  Sender: FDA-Public Use
  Company Number: 2007US002677

PATIENT
  Age: 60 Year
  Sex: Female

DRUGS (5)
  1. PROGRAF [Suspect]
     Indication: LIVER TRANSPLANT
     Dosage: 5 MG
  2. MYCOPHENOLATE MOFETIL [Suspect]
     Indication: LIVER TRANSPLANT
     Dosage: 750 MG, BID, ORAL
     Route: 048
  3. PREDNISOLONE ACETATE [Concomitant]
  4. BACTRIM [Concomitant]
  5. ASPIRIN [Concomitant]

REACTIONS (1)
  - BILIARY TRACT DISORDER [None]
